FAERS Safety Report 7031114-8 (Version None)
Quarter: 2010Q4

REPORT INFORMATION
  Report Type: 
  Country: None (occurrence: None)
  Receive Date: 20101001
  Receipt Date: 20100916
  Transmission Date: 20110411
  Serious: Yes (Hospitalization, Disabling)
  Sender: FDA-Public Use
  Company Number: 017711

PATIENT
  Age: 34 Year
  Sex: Male

DRUGS (2)
  1. KEPPRA [Suspect]
     Indication: CONVULSION
  2. KEPPRA [Suspect]
     Indication: CONVULSION
     Dosage: 2000 MG, 500MG 4 TABLETS DAILY

REACTIONS (10)
  - ACTIVITIES OF DAILY LIVING IMPAIRED [None]
  - AORTIC INJURY [None]
  - CONVULSION [None]
  - FEMUR FRACTURE [None]
  - IMPAIRED WORK ABILITY [None]
  - ROAD TRAFFIC ACCIDENT [None]
  - TRAUMATIC LUNG INJURY [None]
  - TREATMENT NONCOMPLIANCE [None]
  - VENOUS THROMBOSIS LIMB [None]
  - WOUND [None]
